FAERS Safety Report 10005916 (Version 2)
Quarter: 2014Q2

REPORT INFORMATION
  Report Type: Spontaneous
  Country: DE (occurrence: DE)
  Receive Date: 20140313
  Receipt Date: 20140401
  Transmission Date: 20141212
  Serious: Yes (Other)
  Sender: FDA-Public Use
  Company Number: DE-ROCHE-1364176

PATIENT
  Age: 73 Year
  Sex: Female

DRUGS (6)
  1. AVASTIN [Suspect]
     Indication: OVARIAN CANCER
     Route: 042
  2. RAMIPRIL [Concomitant]
     Route: 048
  3. SIMVASTATIN [Concomitant]
     Route: 048
  4. KALITRANS [Concomitant]
     Route: 048
  5. EUPHYLONG [Concomitant]
     Route: 048
  6. BEROTEC [Concomitant]
     Route: 055

REACTIONS (1)
  - Atrial flutter [Unknown]
